FAERS Safety Report 9579851 (Version 1)
Quarter: 2013Q4

REPORT INFORMATION
  Report Type: Spontaneous
  Country: US (occurrence: US)
  Receive Date: 20131002
  Receipt Date: 20131002
  Transmission Date: 20140711
  Serious: Yes (Other)
  Sender: FDA-Public Use
  Company Number: US-ASTRAZENECA-2013SE71661

PATIENT
  Sex: 0

DRUGS (1)
  1. NEXIUM [Suspect]
     Route: 048

REACTIONS (4)
  - Haematological malignancy [Unknown]
  - Bone cancer [Unknown]
  - Lower limb fracture [Unknown]
  - Mass [Unknown]
